FAERS Safety Report 8321026 (Version 2)
Quarter: 2013Q1

REPORT INFORMATION
  Report Type: Spontaneous
  Country: US (occurrence: US)
  Receive Date: 20120104
  Receipt Date: 20130228
  Transmission Date: 20140127
  Serious: Yes (Hospitalization)
  Sender: FDA-Public Use
  Company Number: US-ELI_LILLY_AND_COMPANY-US201104007162

PATIENT
  Age: 63 Year
  Sex: Female
  Weight: 58.5 kg

DRUGS (2)
  1. FORTEO [Suspect]
     Indication: OSTEOPOROSIS
     Dosage: 20 UG, QD
     Route: 065
     Dates: start: 20101222
  2. FORTEO [Suspect]
     Dosage: 20 UG, QD
     Route: 065
     Dates: end: 201211

REACTIONS (11)
  - Kidney infection [Unknown]
  - Haematuria [Unknown]
  - Urethral obstruction [Unknown]
  - Nephrolithiasis [Unknown]
  - Nephrolithiasis [Unknown]
  - Bone pain [Unknown]
  - Pain in extremity [Unknown]
  - Musculoskeletal chest pain [Unknown]
  - Sleep disorder due to a general medical condition [Unknown]
  - Muscle tightness [Unknown]
  - Arthralgia [Unknown]
